FAERS Safety Report 24631687 (Version 7)
Quarter: 2025Q3

REPORT INFORMATION
  Report Type: Report from Study
  Country: US (occurrence: US)
  Receive Date: 20241118
  Receipt Date: 20250912
  Transmission Date: 20251021
  Serious: Yes (Other)
  Sender: UCB
  Company Number: US-UCBSA-2024059125

PATIENT
  Age: 50 Year
  Sex: Female
  Weight: 61.678 kg

DRUGS (1)
  1. FINTEPLA [Suspect]
     Active Substance: FENFLURAMINE
     Indication: Seizure
     Dosage: 5.9 MILLILITER, 2X/DAY (BID)
     Route: 048

REACTIONS (14)
  - Mitral valve incompetence [Unknown]
  - Tricuspid valve incompetence [Not Recovered/Not Resolved]
  - Myxomatous mitral valve degeneration [Unknown]
  - Mitral valve calcification [Unknown]
  - Tricuspid valve disease [Unknown]
  - Aortic arteriosclerosis [Unknown]
  - Aortic dilatation [Unknown]
  - Mitral valve thickening [Unknown]
  - Tricuspid valve thickening [Unknown]
  - Cardiomyopathy [Unknown]
  - Left atrial dilatation [Unknown]
  - Anxiety [Unknown]
  - Screaming [Unknown]
  - Inferior vena cava dilatation [Not Recovered/Not Resolved]

NARRATIVE: CASE EVENT DATE: 20240129
